FAERS Safety Report 6132378-5 (Version None)
Quarter: 2009Q1

REPORT INFORMATION
  Report Type: 
  Country: None (occurrence: None)
  Receive Date: 20090325
  Receipt Date: 20090319
  Transmission Date: 20090719
  Serious: Yes (Other)
  Sender: FDA-Public Use
  Company Number: TH-ABBOTT-09P-155-0561393-00

PATIENT
  Sex: Male
  Weight: 59 kg

DRUGS (12)
  1. SEVOFLURANE [Suspect]
     Indication: DRUG USE FOR UNKNOWN INDICATION
     Dosage: RANGE: 5-8%- 70 SECONDS
     Route: 055
     Dates: start: 20090303, end: 20090303
  2. N2O:02 [Concomitant]
     Indication: DRUG USE FOR UNKNOWN INDICATION
     Dates: start: 20090303, end: 20090303
  3. TRACRIUM [Concomitant]
     Indication: DRUG USE FOR UNKNOWN INDICATION
     Route: 042
     Dates: start: 20090303, end: 20090303
  4. MORPHINE [Concomitant]
     Indication: DRUG USE FOR UNKNOWN INDICATION
     Route: 042
     Dates: start: 20090303, end: 20090303
  5. DORMICUM [Concomitant]
     Indication: DRUG USE FOR UNKNOWN INDICATION
     Route: 048
     Dates: start: 20090303, end: 20090303
  6. LOSEC [Concomitant]
     Indication: DRUG USE FOR UNKNOWN INDICATION
     Route: 048
     Dates: start: 20090303, end: 20090303
  7. ATROPINE [Concomitant]
     Indication: DRUG USE FOR UNKNOWN INDICATION
     Route: 042
     Dates: start: 20090303, end: 20090303
  8. PROSTIGMIN BROMIDE [Concomitant]
     Indication: DRUG USE FOR UNKNOWN INDICATION
     Route: 042
     Dates: start: 20090303, end: 20090303
  9. CEFAZOLIN AND DEXTROSE [Concomitant]
     Indication: DRUG USE FOR UNKNOWN INDICATION
     Route: 042
     Dates: start: 20090303, end: 20090303
  10. XYLOCAINE W/ EPINEPHRINE [Concomitant]
     Indication: DRUG USE FOR UNKNOWN INDICATION
     Dates: start: 20090303, end: 20090303
  11. SOLU-MEDRAL [Concomitant]
     Indication: DRUG USE FOR UNKNOWN INDICATION
     Dosage: ADD IN 0.9% NSS 100 CC IV DRIP IN 15 MIN.- LOADING DOSE
     Route: 042
     Dates: start: 20090303, end: 20090303
  12. SOLU-MEDRAL [Concomitant]
     Dosage: IV DRIP IN 23 HOUR
     Route: 042
     Dates: start: 20090303, end: 20090303

REACTIONS (2)
  - DYSKINESIA [None]
  - HYPOTENSION [None]
